FAERS Safety Report 9877216 (Version 1)
Quarter: 2014Q1

REPORT INFORMATION
  Report Type: Report from Study
  Country: LB (occurrence: LB)
  Receive Date: 20140206
  Receipt Date: 20140206
  Transmission Date: 20141002
  Serious: Yes (Hospitalization)
  Sender: FDA-Public Use
  Company Number: LB-SA-2014SA011842

PATIENT
  Age: 76 Year
  Sex: Female

DRUGS (5)
  1. LANTUS SOLOSTAR [Suspect]
     Indication: DIABETES MELLITUS
     Dosage: 10-16U, DAILY, TREATMENT START DATE 1 YEAR
     Route: 058
  2. SOLOSTAR [Concomitant]
     Indication: DEVICE THERAPY
  3. ORAL ANTIDIABETICS [Concomitant]
     Indication: DIABETES MELLITUS
     Route: 048
  4. ATORVASTATIN [Concomitant]
     Route: 048
  5. RAMIPRIL [Concomitant]
     Route: 048

REACTIONS (2)
  - Skin discolouration [Unknown]
  - Oedema [Unknown]
